FAERS Safety Report 11920091 (Version 6)
Quarter: 2016Q2

REPORT INFORMATION
  Report Type: Spontaneous
  Country: JP (occurrence: JP)
  Receive Date: 20160115
  Receipt Date: 20160520
  Transmission Date: 20160815
  Serious: Yes (Hospitalization, Other)
  Sender: FDA-Public Use
  Company Number: JP-009507513-1601JPN003196

PATIENT
  Age: 48 Year
  Sex: Male
  Weight: 72 kg

DRUGS (8)
  1. BELSOMRA [Suspect]
     Active Substance: SUVOREXANT
     Indication: DEPRESSED MOOD
  2. LOXONIN [Concomitant]
     Active Substance: LOXOPROFEN SODIUM
     Dosage: AS-NEED BASIS, DAILY DOSAGE UNKNOWN
     Route: 048
  3. MUCOSTA [Concomitant]
     Active Substance: REBAMIPIDE
     Dosage: AS-NEED BASIS, DAILY DOSAGE UNKNOWN
     Route: 048
  4. DORAL [Suspect]
     Active Substance: QUAZEPAM
     Indication: DEPRESSION
     Dosage: 30 MG, QD
     Route: 048
     Dates: start: 20150917
  5. CYMBALTA [Suspect]
     Active Substance: DULOXETINE HYDROCHLORIDE
     Indication: DEPRESSION
     Dosage: 60 MG, QD
     Route: 048
     Dates: start: 20151203
  6. LEXAPRO [Concomitant]
     Active Substance: ESCITALOPRAM OXALATE
     Indication: DEPRESSION
     Dosage: FORMULATION POR, DAILY DOSAGE UNKNOWN
     Route: 048
     Dates: start: 20150903, end: 20151218
  7. YOKU-KAN-SAN [Concomitant]
     Indication: DEPRESSION
     Dosage: FORMULATION: POR
     Route: 048
     Dates: start: 20151022, end: 20151202
  8. BELSOMRA [Suspect]
     Active Substance: SUVOREXANT
     Indication: INSOMNIA
     Dosage: 20 MG, ONCE A DAY
     Route: 048
     Dates: start: 20151203, end: 20160106

REACTIONS (3)
  - Antisynthetase syndrome [Not Recovered/Not Resolved]
  - Interstitial lung disease [Not Recovered/Not Resolved]
  - Product use issue [Unknown]

NARRATIVE: CASE EVENT DATE: 20151203
